FAERS Safety Report 18413634 (Version 2)
Quarter: 2020Q4

REPORT INFORMATION
  Report Type: Report from Study
  Country: RU (occurrence: RU)
  Receive Date: 20201022
  Receipt Date: 20201029
  Transmission Date: 20210114
  Serious: Yes (Hospitalization)
  Sender: FDA-Public Use
  Company Number: RU-VERASTEM-2020-00237

PATIENT

DRUGS (2)
  1. IPI-145 [Suspect]
     Active Substance: DUVELISIB
     Indication: NON-HODGKIN^S LYMPHOMA UNSPECIFIED HISTOLOGY INDOLENT
     Dosage: 25 MILLIGRAM, BID
     Route: 048
     Dates: start: 20200825, end: 20201013
  2. IPI-145 [Suspect]
     Active Substance: DUVELISIB
     Dosage: 25 MILLIGRAM, BID
     Route: 048
     Dates: start: 20201016

REACTIONS (1)
  - Pylorospasm [Recovered/Resolved]

NARRATIVE: CASE EVENT DATE: 20201011
